FAERS Safety Report 7184530-8 (Version None)
Quarter: 2010Q4

REPORT INFORMATION
  Report Type: 
  Country: None (occurrence: None)
  Receive Date: 20101222
  Receipt Date: 20101214
  Transmission Date: 20110411
  Serious: Yes (Death)
  Sender: FDA-Public Use
  Company Number: KR-ACTELION-A-CH2010-41634

PATIENT
  Age: 52 Year
  Sex: Female

DRUGS (8)
  1. TRACLEER [Suspect]
     Indication: PULMONARY ARTERIAL HYPERTENSION
     Dosage: 62.5 MG, BID
     Route: 048
     Dates: start: 20100501, end: 20101030
  2. LASIX [Concomitant]
  3. ALDACTONE [Concomitant]
  4. CAPTOPRIL [Concomitant]
  5. DIGOXIN [Concomitant]
  6. VIAGRA [Concomitant]
  7. CORTICOSTEROIDS [Concomitant]
  8. AMINOPHYLLINE [Concomitant]

REACTIONS (5)
  - PNEUMONIA [None]
  - PRURITUS [None]
  - RIGHT VENTRICULAR FAILURE [None]
  - SKIN DISORDER [None]
  - SKIN INFECTION [None]
